FAERS Safety Report 22305527 (Version 1)
Quarter: 2023Q2

REPORT INFORMATION
  Report Type: Report from Study
  Country: TW (occurrence: TW)
  Receive Date: 20230510
  Receipt Date: 20230510
  Transmission Date: 20230721
  Serious: Yes (Hospitalization, Other)
  Sender: FDA-Public Use
  Company Number: TW-BRISTOL-MYERS SQUIBB COMPANY-2023-039451

PATIENT
  Age: 71 Year
  Sex: Female
  Weight: 60 kg

DRUGS (10)
  1. PLACEBO [Suspect]
     Active Substance: UNSPECIFIED INGREDIENT
     Indication: Hepatocellular carcinoma
     Dosage: ONLY ONE DOSE RECEIVED.
     Route: 042
     Dates: start: 20230307
  2. NIVOLUMAB [Suspect]
     Active Substance: NIVOLUMAB
     Indication: Hepatocellular carcinoma
     Dosage: ONLY ONE DOSE RECEIVED.
     Route: 042
     Dates: start: 20230307
  3. BEVACIZUMAB [Suspect]
     Active Substance: BEVACIZUMAB
     Indication: Hepatocellular carcinoma
     Dosage: ONLY ONE DOSE RECEIVED
     Route: 042
     Dates: start: 20230307
  4. ENTECAVIR [Concomitant]
     Active Substance: ENTECAVIR
     Indication: Prophylaxis
     Dosage: QD
     Route: 048
     Dates: start: 20230207
  5. PROPRANOLOL HYDROCHLORIDE [Concomitant]
     Active Substance: PROPRANOLOL HYDROCHLORIDE
     Indication: Prophylaxis
     Dosage: BID
     Route: 048
     Dates: start: 20230202
  6. ALPRAZOLAM [Concomitant]
     Active Substance: ALPRAZOLAM
     Indication: Prophylaxis
     Dosage: DAILY
     Route: 048
     Dates: start: 20230205
  7. RABEPRAZOLE [Concomitant]
     Active Substance: RABEPRAZOLE
     Indication: Prophylaxis
     Dosage: ONCE
     Route: 048
     Dates: start: 20230308
  8. DIMETHYLPOLYSILOXANE [Concomitant]
     Indication: Prophylaxis
     Dosage: BID
     Route: 048
     Dates: start: 20230308
  9. TRANEXAMICACID [Concomitant]
     Indication: Prophylaxis
     Dosage: TID
     Route: 048
     Dates: start: 20230308
  10. SILYMARINE [Concomitant]
     Indication: Prophylaxis
     Dosage: TID
     Route: 048
     Dates: start: 20230201, end: 20230308

REACTIONS (2)
  - Hyperbilirubinaemia [Recovered/Resolved]
  - Urinary tract infection [Recovered/Resolved]

NARRATIVE: CASE EVENT DATE: 20230315
